FAERS Safety Report 7057544-6 (Version None)
Quarter: 2010Q4

REPORT INFORMATION
  Report Type: 
  Country: None (occurrence: None)
  Receive Date: 20101022
  Receipt Date: 20101014
  Transmission Date: 20110411
  Serious: Yes (Hospitalization, Other)
  Sender: FDA-Public Use
  Company Number: FR-KINGPHARMUSA00001-K201001276

PATIENT
  Sex: Male
  Weight: 105 kg

DRUGS (15)
  1. ALTACE [Suspect]
     Indication: MICROALBUMINURIA
     Dosage: 10 MG, QD
     Route: 048
  2. PLACEBO [Suspect]
     Indication: TYPE 2 DIABETES MELLITUS
     Dosage: UNK
     Route: 048
     Dates: start: 20100811, end: 20100924
  3. METFORMIN [Suspect]
     Indication: TYPE 2 DIABETES MELLITUS
     Dosage: 3000 MG, QD
     Route: 048
  4. ASPIRIN [Suspect]
  5. PANTOPRAZOLE [Suspect]
     Indication: NAUSEA
     Dosage: UNK
     Dates: start: 20100904, end: 20100904
  6. FUROSEMIDE [Concomitant]
     Dosage: 20 MG, UNK
  7. ACETAMINOPHEN AND CODEINE PHOSPHATE [Concomitant]
  8. ENDEP [Concomitant]
  9. CARVEDILOL [Concomitant]
  10. AMARYL [Concomitant]
     Dosage: 4 MG, UNK
  11. ATORVASTATIN [Concomitant]
     Dosage: UNK
     Dates: end: 20100924
  12. LOPERAMIDE HYDROCHLORIDE [Concomitant]
     Dosage: UNK
     Dates: start: 20100807, end: 20100823
  13. MIXTARD HUMAN 70/30 [Concomitant]
     Dosage: UNK
     Dates: start: 20100601, end: 20100924
  14. INSULIN [Concomitant]
     Dosage: UNK
     Dates: start: 20100924
  15. LANTUS [Concomitant]
     Dosage: UNK
     Dates: start: 20100928

REACTIONS (9)
  - BLOOD CREATININE INCREASED [None]
  - DECREASED APPETITE [None]
  - DEHYDRATION [None]
  - DIARRHOEA [None]
  - GASTROINTESTINAL DISORDER [None]
  - MALAISE [None]
  - NAUSEA [None]
  - RENAL FAILURE ACUTE [None]
  - VOMITING [None]
